FAERS Safety Report 9098357 (Version 2)
Quarter: 2013Q1

REPORT INFORMATION
  Report Type: Spontaneous
  Country: US (occurrence: US)
  Receive Date: 20130213
  Receipt Date: 20130321
  Transmission Date: 20140127
  Serious: Yes (Life-Threatening, Other)
  Sender: FDA-Public Use
  Company Number: CHPA2013US002606

PATIENT
  Sex: Male

DRUGS (1)
  1. EXCEDRIN EXTRA STRENGTH [Suspect]
     Dosage: UNK
     Route: 048

REACTIONS (1)
  - Ulcer haemorrhage [Unknown]
